FAERS Safety Report 7867378-8 (Version None)
Quarter: 2011Q4

REPORT INFORMATION
  Report Type: 
  Country: None (occurrence: None)
  Receive Date: 20111028
  Receipt Date: 20111026
  Transmission Date: 20120403
  Serious: Yes (Hospitalization)
  Sender: FDA-Public Use
  Company Number: ES-AMGEN-ESPCT2011053732

PATIENT
  Age: 67 Year
  Sex: Male

DRUGS (4)
  1. FLUOROURACIL [Concomitant]
     Dosage: UNK
     Route: 042
     Dates: start: 20111003
  2. MITOMYCIN [Concomitant]
     Dosage: UNK
     Route: 042
     Dates: start: 20111003
  3. ALBUTEROL SULFATE AUTOHALER [Concomitant]
     Dosage: UNK
     Route: 045
  4. PANITUMUMAB [Suspect]
     Indication: ANAL CANCER
     Dosage: UNK UNK, Q2WK
     Route: 042
     Dates: start: 20111003

REACTIONS (1)
  - PHARYNGEAL INFLAMMATION [None]
